FAERS Safety Report 7961984-8 (Version None)
Quarter: 2011Q4

REPORT INFORMATION
  Report Type: 
  Country: None (occurrence: None)
  Receive Date: 20111207
  Receipt Date: 20111128
  Transmission Date: 20120403
  Serious: Yes (Hospitalization, Other)
  Sender: FDA-Public Use
  Company Number: US-ROCHE-1016869

PATIENT
  Sex: Male

DRUGS (1)
  1. ZELBORAF [Suspect]
     Indication: PRODUCT USED FOR UNKNOWN INDICATION

REACTIONS (7)
  - WHITE BLOOD CELL COUNT INCREASED [None]
  - CONVULSION [None]
  - NERVOUS SYSTEM DISORDER [None]
  - FATIGUE [None]
  - URINARY TRACT INFECTION [None]
  - ARRHYTHMIA [None]
  - GAIT DISTURBANCE [None]
